FAERS Safety Report 6980319-0 (Version None)
Quarter: 2010Q3

REPORT INFORMATION
  Report Type: 
  Country: None (occurrence: None)
  Receive Date: 20100908
  Receipt Date: 20100901
  Transmission Date: 20110219
  Serious: Yes (Other)
  Sender: FDA-Public Use
  Company Number: 2010SP030011

PATIENT
  Age: 49 Year
  Sex: Male

DRUGS (8)
  1. MIRTAZAPINE [Suspect]
     Indication: DEPRESSION
     Dosage: 15 MG; QD; PO, 15 MG; BID; PO
     Route: 048
     Dates: start: 20091211, end: 20100527
  2. MIRTAZAPINE [Suspect]
     Indication: DEPRESSION
     Dosage: 15 MG; QD; PO, 15 MG; BID; PO
     Route: 048
     Dates: start: 20100527
  3. ZOLPIDEM [Concomitant]
  4. TETRAZEPAM [Concomitant]
  5. LYSANXIA [Concomitant]
  6. TANAKAN [Concomitant]
  7. VASTAREL [Concomitant]
  8. ROPINIROLE HYDROCHLORIDE [Concomitant]

REACTIONS (12)
  - BACK PAIN [None]
  - BLOOD TRIGLYCERIDES INCREASED [None]
  - CONVERSION DISORDER [None]
  - DRUG INEFFECTIVE [None]
  - HYPERCHOLESTEROLAEMIA [None]
  - INTENTIONAL SELF-INJURY [None]
  - LOW DENSITY LIPOPROTEIN INCREASED [None]
  - MENTAL STATUS CHANGES [None]
  - NAUSEA [None]
  - OBSESSIVE-COMPULSIVE DISORDER [None]
  - PSYCHOSOMATIC DISEASE [None]
  - SELF-INDUCED VOMITING [None]
